FAERS Safety Report 5337317-2 (Version None)
Quarter: 2007Q2

REPORT INFORMATION
  Report Type: 
  Country: None (occurrence: None)
  Receive Date: 20070312
  Receipt Date: 20070110
  Transmission Date: 20071010
  Serious: Yes (Other)
  Sender: FDA-Public Use
  Company Number: 2007-0011017

PATIENT
  Age: 39 Year
  Sex: Female
  Weight: 60 kg

DRUGS (2)
  1. ATRIPLA [Suspect]
     Indication: HIV INFECTION
     Dosage: 1 IN 1 D, ORAL
     Route: 048
     Dates: start: 20061207, end: 20061222
  2. SEPTRA [Suspect]
     Dosage: 1 IN 1 D, ORAL
     Route: 048
     Dates: start: 20061207, end: 20061221

REACTIONS (3)
  - DIZZINESS [None]
  - RASH [None]
  - SWELLING FACE [None]
